FAERS Safety Report 12619228 (Version 2)
Quarter: 2016Q3

REPORT INFORMATION
  Report Type: Report from Study
  Country: US (occurrence: US)
  Receive Date: 20160803
  Receipt Date: 20160825
  Transmission Date: 20161109
  Serious: Yes (Hospitalization)
  Sender: FDA-Public Use
  Company Number: US-VERTEX PHARMACEUTICALS-2016-004651

PATIENT
  Age: 30 Year
  Sex: Male

DRUGS (15)
  1. CREON [Concomitant]
     Active Substance: PANCRELIPASE AMYLASE\PANCRELIPASE LIPASE\PANCRELIPASE PROTEASE
     Dosage: 6 DF, UNK
     Route: 048
  2. MAGNESIUM OXIDE. [Concomitant]
     Active Substance: MAGNESIUM OXIDE
     Dosage: 200 MG, BID
     Route: 048
     Dates: start: 20160728
  3. MULTIVITAMINS WITH MINERALS [Concomitant]
     Active Substance: MINERALS\VITAMINS
     Dosage: 2 DF, BID
     Route: 048
     Dates: start: 20160728
  4. ASCORBIC ACID W/FOLIC ACID/VITAMIN B COMPLEX [Concomitant]
     Dosage: 1 DF, BID
     Route: 048
     Dates: start: 20160728
  5. TOBI [Suspect]
     Active Substance: TOBRAMYCIN
     Indication: PRODUCT USED FOR UNKNOWN INDICATION
     Dosage: UNK, QD
     Route: 055
  6. TOBI [Suspect]
     Active Substance: TOBRAMYCIN
     Dosage: UNK, QD
     Route: 055
  7. VITAMIN D3 [Concomitant]
     Active Substance: CHOLECALCIFEROL
     Dosage: 5000 IU, QD
     Route: 048
  8. PANTOPRAZOLE SODIUM. [Concomitant]
     Active Substance: PANTOPRAZOLE SODIUM
     Dosage: 80 MG, BID
     Route: 048
     Dates: start: 20160728
  9. ACETYLSALICYLIC ACID W/CAMPHOR/MENTHOL/METHYL [Concomitant]
     Dosage: 1 APPLICATION, Q4 HRLY, PRN
     Route: 061
  10. INSULIN LISPRO [Concomitant]
     Active Substance: INSULIN LISPRO
     Dosage: 1 U PER 50G CARBS; BEFORE MEALS AND SNACKS
     Route: 058
  11. ORKAMBI [Suspect]
     Active Substance: IVACAFTOR\LUMACAFTOR
     Indication: CYSTIC FIBROSIS
     Dosage: UNK
     Route: 048
     Dates: start: 20150810
  12. AQUADEKS [Concomitant]
     Active Substance: MINERALS\VITAMINS
     Dosage: 2 DF, BID
     Route: 048
  13. DOXYCYCLINE HYCLATE. [Concomitant]
     Active Substance: DOXYCYCLINE HYCLATE
     Dosage: 100 MG, BID
     Route: 048
     Dates: start: 20160728
  14. SODIUM CHLORIDE. [Concomitant]
     Active Substance: SODIUM CHLORIDE
     Dosage: 4 ML, BID
     Route: 055
     Dates: start: 20160728
  15. POTASSIUM CHLORIDE/SODIUM CHLORIDE [Concomitant]
     Dosage: 1000 ML, CONTINUOUS
     Route: 042

REACTIONS (1)
  - Infective pulmonary exacerbation of cystic fibrosis [Not Recovered/Not Resolved]

NARRATIVE: CASE EVENT DATE: 201607
